FAERS Safety Report 7414728-2 (Version None)
Quarter: 2011Q1

REPORT INFORMATION
  Report Type: 
  Country: None (occurrence: None)
  Receive Date: 20110301
  Receipt Date: 20100921
  Transmission Date: 20110831
  Serious: Yes (Other)
  Sender: FDA-Public Use
  Company Number: US-JNJFOC-20071204990

PATIENT
  Age: 77 Year
  Sex: Female
  Weight: 68.0396 kg

DRUGS (3)
  1. MOTRIN IB [Suspect]
     Indication: ARTHRALGIA
     Dosage: 800 MG, 1 IN 1 DAY
     Dates: start: 19970101, end: 20050101
  2. BLOOD PRESSURE MEDICATION (ANTIHYPERTENSIVES) [Concomitant]
  3. HEART MEDICATION ( (CARDIAC THERAPY) [Concomitant]

REACTIONS (2)
  - GASTROINTESTINAL ULCER HAEMORRHAGE [None]
  - INCORRECT DRUG ADMINISTRATION DURATION [None]
